FAERS Safety Report 12671615 (Version 1)
Quarter: 2016Q3

REPORT INFORMATION
  Report Type: Spontaneous
  Country: US (occurrence: US)
  Receive Date: 20160822
  Receipt Date: 20160822
  Transmission Date: 20161109
  Serious: No
  Sender: FDA-Public Use
  Company Number: US-MISSION PHARMACAL COMPANY-1056567

PATIENT
  Age: 67 Year
  Sex: Male

DRUGS (1)
  1. THIOLA [Suspect]
     Active Substance: TIOPRONIN
     Indication: CYSTINURIA
     Route: 065
     Dates: start: 20160725, end: 20160804

REACTIONS (5)
  - Diarrhoea [Recovered/Resolved]
  - Drug dose omission [Unknown]
  - Flatulence [Recovering/Resolving]
  - Pruritus [Recovering/Resolving]
  - Abdominal distension [Recovering/Resolving]
